FAERS Safety Report 5285827-9 (Version None)
Quarter: 2007Q1

REPORT INFORMATION
  Report Type: 
  Country: None (occurrence: None)
  Receive Date: 20070116
  Receipt Date: 20061013
  Transmission Date: 20070707
  Serious: No
  Sender: FDA-Public Use
  Company Number: 2006SP003657

PATIENT
  Age: 62 Year
  Sex: Female
  Weight: 87.9978 kg

DRUGS (5)
  1. LUNESTA [Suspect]
     Indication: INSOMNIA
     Dosage: 2 MG;HS;ORAL
     Route: 048
     Dates: start: 20061009
  2. NEURONTIN [Concomitant]
  3. LEVOTHYROXINE SODIUM [Concomitant]
  4. CALCIUM [Concomitant]
  5. VITAMINUM B-COMPLEX FOR INJECTION [Concomitant]

REACTIONS (2)
  - ORAL PAIN [None]
  - TONGUE BLISTERING [None]
